FAERS Safety Report 5820860-7 (Version None)
Quarter: 2008Q3

REPORT INFORMATION
  Report Type: 
  Country: None (occurrence: None)
  Receive Date: 20080724
  Receipt Date: 20080220
  Transmission Date: 20090109
  Serious: No
  Sender: FDA-Public Use
  Company Number: US-BAYER-200713770BCC

PATIENT
  Age: 44 Year
  Sex: Female
  Weight: 93 kg

DRUGS (3)
  1. ALEVE [Suspect]
     Indication: ARTHRALGIA
     Dosage: TOTAL DAILY DOSE: 440 MG  UNIT DOSE: 220 MG
     Route: 048
     Dates: start: 20071112, end: 20071112
  2. ALEVE [Suspect]
     Dosage: TOTAL DAILY DOSE: 1320 MG  UNIT DOSE: 220 MG
     Route: 048
     Dates: start: 20071113, end: 20071113
  3. PERCOCET [Concomitant]
     Indication: ARTHRALGIA
     Dates: start: 20071111

REACTIONS (6)
  - FEELING COLD [None]
  - FEELING HOT [None]
  - INSOMNIA [None]
  - NAUSEA [None]
  - RESTLESSNESS [None]
  - VOMITING [None]
